FAERS Safety Report 10706155 (Version 2)
Quarter: 2015Q1

REPORT INFORMATION
  Report Type: Spontaneous
  Country: PT (occurrence: PT)
  Receive Date: 20150113
  Receipt Date: 20150113
  Transmission Date: 20150721
  Serious: Yes (Hospitalization)
  Sender: FDA-Public Use
  Company Number: PT-CIPLA LTD.-2014PT03059

PATIENT

DRUGS (3)
  1. CARBOPLATIN. [Suspect]
     Active Substance: CARBOPLATIN
     Indication: MUCOEPIDERMOID CARCINOMA
     Dosage: UNK
  2. PACLITAXEL. [Suspect]
     Active Substance: PACLITAXEL
     Indication: MUCOEPIDERMOID CARCINOMA
     Dosage: UNK
  3. GEMCITABINE [Suspect]
     Active Substance: GEMCITABINE\GEMCITABINE HYDROCHLORIDE
     Indication: MUCOEPIDERMOID CARCINOMA

REACTIONS (3)
  - Pulmonary embolism [Unknown]
  - Respiratory failure [Unknown]
  - Disease progression [Unknown]
